FAERS Safety Report 7291295-8 (Version None)
Quarter: 2011Q1

REPORT INFORMATION
  Report Type: 
  Country: None (occurrence: None)
  Receive Date: 20110214
  Receipt Date: 20110209
  Transmission Date: 20110831
  Serious: Yes (Hospitalization)
  Sender: FDA-Public Use
  Company Number: A0754674A

PATIENT
  Sex: Male
  Weight: 88 kg

DRUGS (8)
  1. AVANDIA [Suspect]
     Dosage: 8MG PER DAY
     Route: 048
     Dates: start: 19990101
  2. COUMADIN [Concomitant]
  3. FOLGARD [Concomitant]
  4. GLUCOPHAGE [Concomitant]
     Dates: start: 19930101, end: 20060601
  5. ZOCOR [Concomitant]
  6. ALTACE [Concomitant]
  7. VICODIN [Concomitant]
  8. SOMA [Concomitant]

REACTIONS (3)
  - ARTERIAL DISORDER [None]
  - CORONARY ARTERY DISEASE [None]
  - INJURY [None]
